FAERS Safety Report 16264112 (Version 1)
Quarter: 2019Q2

REPORT INFORMATION
  Report Type: Spontaneous
  Country: US (occurrence: US)
  Receive Date: 20190328
  Receipt Date: 20190328
  Transmission Date: 20190711
  Serious: No
  Sender: FDA-Public Use
  Company Number: None

PATIENT

DRUGS (3)
  1. MIDAZOLAM HCL [Suspect]
     Active Substance: MIDAZOLAM HYDROCHLORIDE
  2. FENTANYL. [Suspect]
     Active Substance: FENTANYL
  3. ETOMIDATE. [Suspect]
     Active Substance: ETOMIDATE

REACTIONS (2)
  - Incorrect drug administration rate [None]
  - Dose calculation error [None]
